FAERS Safety Report 12573484 (Version 1)
Quarter: 2016Q3

REPORT INFORMATION
  Report Type: Spontaneous
  Country: US (occurrence: US)
  Receive Date: 20160720
  Receipt Date: 20160720
  Transmission Date: 20161109
  Serious: No
  Sender: FDA-Public Use
  Company Number: US-PFIZER INC-2016318487

PATIENT
  Sex: Male

DRUGS (2)
  1. ARTHROTEC [Suspect]
     Active Substance: DICLOFENAC SODIUM\MISOPROSTOL
     Dosage: UNK
  2. CATAFLAM [Suspect]
     Active Substance: DICLOFENAC POTASSIUM
     Dosage: UNK

REACTIONS (2)
  - Gastrointestinal disorder [Unknown]
  - Drug hypersensitivity [Unknown]
